FAERS Safety Report 5299912-9 (Version None)
Quarter: 2007Q2

REPORT INFORMATION
  Report Type: 
  Country: None (occurrence: None)
  Receive Date: 20070417
  Receipt Date: 20070405
  Transmission Date: 20071010
  Serious: Yes (Hospitalization)
  Sender: FDA-Public Use
  Company Number: JP-PFIZER INC-2007027774

PATIENT
  Sex: Male
  Weight: 40.4 kg

DRUGS (5)
  1. VFEND [Suspect]
     Indication: BRONCHOPULMONARY ASPERGILLOSIS
     Dosage: DAILY DOSE:400MG
     Route: 042
     Dates: start: 20070309, end: 20070309
  2. VFEND [Suspect]
     Route: 042
     Dates: start: 20070310, end: 20070322
  3. VFEND [Suspect]
     Indication: BRONCHOPULMONARY ASPERGILLOSIS
     Route: 048
  4. BEZATOL - SLOW RELEASE [Suspect]
     Dosage: DAILY DOSE:200MG
     Route: 048
  5. ALLOPURINOL [Suspect]
     Dosage: DAILY DOSE:100MG
     Route: 048

REACTIONS (1)
  - HYPERKALAEMIA [None]
